FAERS Safety Report 23110213 (Version 17)
Quarter: 2025Q1

REPORT INFORMATION
  Report Type: Report from Study
  Country: CA (occurrence: CA)
  Receive Date: 20231026
  Receipt Date: 20250313
  Transmission Date: 20250408
  Serious: Yes (Other)
  Sender: OTSUKA
  Company Number: CA-OTSUKA-2023_008159

PATIENT
  Sex: Male

DRUGS (4)
  1. ARIPIPRAZOLE [Suspect]
     Active Substance: ARIPIPRAZOLE
     Indication: Product used for unknown indication
     Route: 030
  2. CLOZARIL [Concomitant]
     Active Substance: CLOZAPINE
     Indication: Product used for unknown indication
     Dosage: 100 MG X 4 TABS (400 MG) AT HS
     Route: 065
  3. GABAPENTIN [Concomitant]
     Active Substance: GABAPENTIN
     Indication: Product used for unknown indication
     Dosage: 300 MG X 2 CAPS BID
     Route: 065
  4. NALTREXONE [Concomitant]
     Active Substance: NALTREXONE
     Indication: Product used for unknown indication
     Dosage: 50 MG, QD, EACH EVENING
     Route: 065

REACTIONS (30)
  - Removal of inert matter from skin or subcutaneous tissue [Unknown]
  - Intentional self-injury [Recovering/Resolving]
  - Hallucination, auditory [Recovering/Resolving]
  - Suicidal ideation [Unknown]
  - Tongue movement disturbance [Unknown]
  - Self esteem decreased [Unknown]
  - Papilloma viral infection [Unknown]
  - Stress [Recovered/Resolved]
  - Road traffic accident [Unknown]
  - Alcohol abuse [Recovered/Resolved]
  - Paranoia [Not Recovered/Not Resolved]
  - Thinking abnormal [Not Recovered/Not Resolved]
  - Dysarthria [Unknown]
  - Localised infection [Unknown]
  - Emotional distress [Unknown]
  - Hunger [Unknown]
  - Nervousness [Recovered/Resolved]
  - Mood altered [Unknown]
  - Delusion [Recovered/Resolved]
  - Increased appetite [Not Recovered/Not Resolved]
  - Panic reaction [Recovered/Resolved]
  - Depression [Not Recovered/Not Resolved]
  - Asthenia [Not Recovered/Not Resolved]
  - Insomnia [Not Recovered/Not Resolved]
  - Anxiety [Unknown]
  - Gambling disorder [Not Recovered/Not Resolved]
  - Vomiting [Not Recovered/Not Resolved]
  - Off label use [Unknown]
  - Economic problem [Unknown]
  - Poor personal hygiene [Recovered/Resolved]
